FAERS Safety Report 9490445 (Version 3)
Quarter: 2013Q4

REPORT INFORMATION
  Report Type: Spontaneous
  Country: US (occurrence: None)
  Receive Date: 20130826
  Receipt Date: 20131024
  Transmission Date: 20140711
  Serious: Yes (Other)
  Sender: FDA-Public Use
  Company Number: ADR-2013-01473

PATIENT
  Sex: Female

DRUGS (5)
  1. BACLOFEN [Suspect]
     Indication: PAIN
     Dosage: 170 MCG/ML
  2. FENTANYL (6000 MCG/ML) [Suspect]
  3. CLONIDINE [Suspect]
  4. BUPIVACAINE [Suspect]
  5. DILAUDID [Suspect]

REACTIONS (15)
  - Pain [None]
  - Fall [None]
  - Device breakage [None]
  - Feeling abnormal [None]
  - Malaise [None]
  - Medical device complication [None]
  - Device breakage [None]
  - Drug withdrawal syndrome [None]
  - Depression [None]
  - Fatigue [None]
  - Rash [None]
  - Influenza like illness [None]
  - Chest discomfort [None]
  - Decreased appetite [None]
  - Oral pain [None]
